FAERS Safety Report 4898087-5 (Version None)
Quarter: 2006Q1

REPORT INFORMATION
  Report Type: 
  Country: None (occurrence: None)
  Receive Date: 20060201
  Receipt Date: 20060119
  Transmission Date: 20060701
  Serious: Yes (Hospitalization, Other)
  Sender: FDA-Public Use
  Company Number: US-AMGEN-US165681

PATIENT
  Age: 60 Year
  Sex: Female
  Weight: 65.8 kg

DRUGS (4)
  1. PROCRIT [Suspect]
     Indication: ANAEMIA
  2. PEGINTERFERON ALFA-2B [Suspect]
     Route: 058
     Dates: start: 20051031, end: 20051230
  3. RIBAVIRIN [Suspect]
     Dates: start: 20051031, end: 20051230
  4. PLACEBO [Suspect]
     Dates: start: 20051024, end: 20051230

REACTIONS (3)
  - CONVULSION [None]
  - HEADACHE [None]
  - HYPERTENSIVE CRISIS [None]
